FAERS Safety Report 16113110 (Version 4)
Quarter: 2019Q3

REPORT INFORMATION
  Report Type: Spontaneous
  Country: US (occurrence: US)
  Receive Date: 20190325
  Receipt Date: 20190725
  Transmission Date: 20191004
  Serious: Yes (Hospitalization, Other)
  Sender: FDA-Public Use
  Company Number: US-PFIZER INC-2019119759

PATIENT
  Age: 67 Year
  Sex: Female
  Weight: 68 kg

DRUGS (17)
  1. PANTOPRAZOLE SODIUM SESQUIHYDRATE [Concomitant]
     Active Substance: PANTOPRAZOLE SODIUM
     Indication: GASTROOESOPHAGEAL REFLUX DISEASE
     Dosage: 40 MG, 2X/DAY
     Route: 048
  2. LORAZEPAM. [Concomitant]
     Active Substance: LORAZEPAM
     Indication: BLOOD PRESSURE MEASUREMENT
     Dosage: 2 MG, 1X/DAY [ONCE AT NIGHT BY MOUTH]
     Route: 048
  3. CETIRIZINE HYDROCHLORIDE. [Concomitant]
     Active Substance: CETIRIZINE HYDROCHLORIDE
     Indication: SINUS DISORDER
     Dosage: 10 MG, 1X/DAY
     Route: 048
  4. MORPHINE SULFATE. [Concomitant]
     Active Substance: MORPHINE SULFATE
     Indication: PAIN
     Dosage: 15 MG, 3X/DAY
     Route: 048
  5. MORPHINE SULFATE. [Concomitant]
     Active Substance: MORPHINE SULFATE
     Dosage: 15 MG, AS NEEDED
     Route: 048
  6. PSEUDOEPHEDRINE HYDROCHLORIDE. [Concomitant]
     Active Substance: PSEUDOEPHEDRINE HYDROCHLORIDE
     Dosage: 120 MG, 2X/DAY [120MG ONCE A DAY, CAN TAKE IT UP TO TWICE A DAY BY MOUTH]
     Route: 048
  7. ACETYLSALICYLIC ACID [Concomitant]
     Active Substance: ASPIRIN
     Indication: ANTICOAGULANT THERAPY
     Dosage: 81 MG, 1X/DAY
     Route: 048
  8. CELEBREX [Suspect]
     Active Substance: CELECOXIB
     Dosage: 200 MG, 2X/DAY
     Route: 048
     Dates: start: 201901
  9. CELEBREX [Suspect]
     Active Substance: CELECOXIB
     Indication: ARTHRALGIA
     Dosage: 200 MG, 1X/DAY [TAKING ONE A DAY AT NIGHT]
     Dates: start: 201902
  10. GABAPENTIN. [Concomitant]
     Active Substance: GABAPENTIN
     Indication: SPINAL FRACTURE
     Dosage: 900 MG, 3X/DAY [300MG CAPSULE, 3 CAPSULES, 3 TIMES A DAY]
     Route: 048
  11. LEVOTHYROXINE. [Concomitant]
     Active Substance: LEVOTHYROXINE
     Indication: HYPOTHYROIDISM
     Dosage: 5 UG, 1X/DAY
     Route: 048
  12. ROSUVASTATIN. [Concomitant]
     Active Substance: ROSUVASTATIN
     Indication: BLOOD CHOLESTEROL
     Dosage: 10 MG, 1X/DAY
     Route: 048
  13. CLOPIDOGREL BISULFATE. [Concomitant]
     Active Substance: CLOPIDOGREL BISULFATE
     Indication: ANTICOAGULANT THERAPY
     Dosage: 75 MG, 1X/DAY
  14. PSEUDOEPHEDRINE HYDROCHLORIDE. [Concomitant]
     Active Substance: PSEUDOEPHEDRINE HYDROCHLORIDE
     Indication: SINUS DISORDER
     Dosage: 120 MG, 1X/DAY [120MG ONCE A DAY, CAN TAKE IT UP TO TWICE A DAY BY MOUTH]
     Route: 048
  15. CELEBREX [Suspect]
     Active Substance: CELECOXIB
     Indication: ARTHRITIS
     Dosage: 200 MG, 2X/DAY (ONCE IN THE MORNING AND ONCE AT NIGHT)
     Dates: end: 201902
  16. OLMESARTAN [Concomitant]
     Active Substance: OLMESARTAN
     Indication: BLOOD PRESSURE ABNORMAL
     Dosage: 40 MG, 1X/DAY
     Route: 048
  17. LORAZEPAM. [Concomitant]
     Active Substance: LORAZEPAM
     Indication: RESTLESSNESS

REACTIONS (4)
  - Thoracic vertebral fracture [Unknown]
  - Nerve injury [Unknown]
  - Weight decreased [Unknown]
  - Intentional product use issue [Unknown]

NARRATIVE: CASE EVENT DATE: 201810
